FAERS Safety Report 16413732 (Version 1)
Quarter: 2019Q2

REPORT INFORMATION
  Report Type: Report from Study
  Country: US (occurrence: US)
  Receive Date: 20190611
  Receipt Date: 20190611
  Transmission Date: 20190711
  Serious: Yes (Death, Other)
  Sender: FDA-Public Use
  Company Number: US-GILEAD-2019-0412475

PATIENT
  Age: 86 Year
  Sex: Female

DRUGS (9)
  1. AMBRISENTAN [Suspect]
     Active Substance: AMBRISENTAN
     Indication: PULMONARY ARTERIAL HYPERTENSION
     Dosage: 10 MG, QD
     Route: 065
     Dates: start: 20150714
  2. DIGOXIN. [Concomitant]
     Active Substance: DIGOXIN
  3. DILTIAZEM. [Concomitant]
     Active Substance: DILTIAZEM
  4. TEMAZEPAM. [Concomitant]
     Active Substance: TEMAZEPAM
  5. TIKOSYN [Concomitant]
     Active Substance: DOFETILIDE
  6. RESTORIL [CHLORMEZANONE] [Concomitant]
     Active Substance: CHLORMEZANONE
  7. MULTIVITAMIN [VITAMINS NOS] [Concomitant]
  8. OMEPRAZOLE. [Concomitant]
     Active Substance: OMEPRAZOLE
  9. WARFARIN [Concomitant]
     Active Substance: WARFARIN

REACTIONS (1)
  - Death [Fatal]

NARRATIVE: CASE EVENT DATE: 201904
